FAERS Safety Report 7621683-9 (Version None)
Quarter: 2011Q3

REPORT INFORMATION
  Report Type: 
  Country: None (occurrence: None)
  Receive Date: 20110719
  Receipt Date: 20110714
  Transmission Date: 20111222
  Serious: Yes (Death, Hospitalization)
  Sender: FDA-Public Use
  Company Number: US-CELGENEUS-163-21880-11041112

PATIENT
  Sex: Female

DRUGS (5)
  1. ACYCLOVIR [Concomitant]
     Route: 065
  2. REVLIMID [Suspect]
     Dosage: 10 MILLIGRAM
     Route: 048
     Dates: start: 20101101, end: 20110501
  3. BACTRIM DS [Concomitant]
     Route: 065
  4. LIPITOR [Concomitant]
     Route: 065
  5. DEXAMETHASONE [Concomitant]
     Route: 065

REACTIONS (3)
  - DIARRHOEA [None]
  - DEATH [None]
  - DEHYDRATION [None]
